FAERS Safety Report 10260440 (Version 7)
Quarter: 2015Q2

REPORT INFORMATION
  Report Type: Spontaneous
  Country: US (occurrence: US)
  Receive Date: 20140625
  Receipt Date: 20150413
  Transmission Date: 20150821
  Serious: Yes (Life-Threatening, Hospitalization, Congenital Anomaly, Other)
  Sender: FDA-Public Use
  Company Number: US-ELI_LILLY_AND_COMPANY-US201406008624

PATIENT
  Age: 14 Day

DRUGS (5)
  1. PROZAC [Suspect]
     Active Substance: FLUOXETINE HYDROCHLORIDE
     Indication: PRODUCT USED FOR UNKNOWN INDICATION
     Dosage: UNK UNK, UNKNOWN
     Route: 064
  2. PREDNISONE. [Concomitant]
     Active Substance: PREDNISONE
     Indication: BRONCHITIS
     Dosage: 40 MG, UNK
     Route: 064
  3. VANCERIL [Concomitant]
     Active Substance: BECLOMETHASONE DIPROPIONATE
     Route: 064
  4. PROVENTIL [Concomitant]
     Active Substance: ALBUTEROL
     Dosage: 1 DF, QD
     Dates: end: 19980911
  5. PREDNISONE. [Concomitant]
     Active Substance: PREDNISONE
     Indication: SINUSITIS

REACTIONS (15)
  - Sepsis [Unknown]
  - Urinary tract infection [Unknown]
  - Pectus carinatum [Unknown]
  - Meningitis [Unknown]
  - Atrial septal defect [Recovered/Resolved]
  - Premature baby [Unknown]
  - Neonatal respiratory distress syndrome [Unknown]
  - Coagulopathy [Unknown]
  - Bronchial hyperreactivity [Unknown]
  - Foetal exposure during pregnancy [Recovered/Resolved]
  - Cardiac murmur [Unknown]
  - Anaemia [Unknown]
  - Contusion [Unknown]
  - Vitamin K deficiency [Unknown]
  - Upper respiratory tract infection [Unknown]

NARRATIVE: CASE EVENT DATE: 19980926
